FAERS Safety Report 18685924 (Version 1)
Quarter: 2020Q4

REPORT INFORMATION
  Report Type: Report from Study
  Country: DE (occurrence: DE)
  Receive Date: 20201231
  Receipt Date: 20201231
  Transmission Date: 20210114
  Serious: Yes (Hospitalization)
  Sender: FDA-Public Use
  Company Number: DE-ROCHE-2741406

PATIENT
  Age: 67 Year
  Sex: Male

DRUGS (10)
  1. VENETOCLAX. [Suspect]
     Active Substance: VENETOCLAX
     Indication: CHRONIC LYMPHOCYTIC LEUKAEMIA
     Dosage: DATE OF LAST DOSE: 06/DEC/2020
     Route: 048
     Dates: start: 20200622
  2. ENTECAVIR. [Concomitant]
     Active Substance: ENTECAVIR
  3. CANDESARTAN. [Concomitant]
     Active Substance: CANDESARTAN
  4. OBINUTUZUMAB. [Suspect]
     Active Substance: OBINUTUZUMAB
     Indication: CHRONIC LYMPHOCYTIC LEUKAEMIA
     Dosage: DATE OF LAST DOSE: 17/AUG/2020
     Route: 042
     Dates: start: 20200428
  5. OXAZEPAM. [Concomitant]
     Active Substance: OXAZEPAM
     Dates: start: 20201207
  6. METAMIZOLE [Concomitant]
     Active Substance: METAMIZOLE
  7. BENDAMUSTINE [Suspect]
     Active Substance: BENDAMUSTINE
     Indication: CHRONIC LYMPHOCYTIC LEUKAEMIA
     Dosage: DATE OF LAST DOSE: 02/APR/2020
     Route: 042
     Dates: start: 20200401
  8. ACALABRUTINIB. [Suspect]
     Active Substance: ACALABRUTINIB
     Indication: CHRONIC LYMPHOCYTIC LEUKAEMIA
     Dosage: DATE OF LAST DOSE: 17/NOV/2020
     Route: 048
     Dates: start: 20200527
  9. MACROGOL [Concomitant]
     Active Substance: POLYETHYLENE GLYCOLS
     Dates: start: 20200310
  10. FORMOTEROL [Concomitant]
     Active Substance: FORMOTEROL

REACTIONS (1)
  - Prostate cancer [Not Recovered/Not Resolved]

NARRATIVE: CASE EVENT DATE: 20201207
